FAERS Safety Report 5331563-X (Version None)
Quarter: 2007Q2

REPORT INFORMATION
  Report Type: 
  Country: None (occurrence: None)
  Receive Date: 20070522
  Receipt Date: 20070518
  Transmission Date: 20071010
  Serious: Yes (Death)
  Sender: FDA-Public Use
  Company Number: ES-SHR-ES-2007-017937

PATIENT
  Age: 55 Year
  Sex: Male

DRUGS (7)
  1. CAMPATH [Suspect]
     Dosage: UNK, UNK
     Route: 042
     Dates: start: 20070331
  2. FOSCARNET [Concomitant]
     Indication: INFECTION
     Dosage: 6000 MG, UNK
     Route: 042
     Dates: end: 20070504
  3. MEROPENEM [Concomitant]
     Indication: INFECTION
     Dosage: 3 G, UNK
     Route: 042
     Dates: end: 20070504
  4. FUROSEMIDE [Concomitant]
     Dosage: 60 MG, UNK
     Route: 042
     Dates: end: 20070504
  5. METHYLPREDNISOLONE 16MG TAB [Concomitant]
     Dosage: 20 MG, UNK
     Route: 042
     Dates: end: 20070504
  6. CASPOFUNGIN [Concomitant]
     Indication: INFECTION
     Dosage: 50 MG, UNK
     Route: 042
     Dates: end: 20070504
  7. MYCOPHENOLATE SODIUM [Concomitant]
     Dosage: 3 G, UNK
     Route: 042
     Dates: end: 20070504

REACTIONS (1)
  - MULTI-ORGAN FAILURE [None]
